FAERS Safety Report 16319955 (Version 1)
Quarter: 2019Q2

REPORT INFORMATION
  Report Type: Spontaneous
  Country: US (occurrence: US)
  Receive Date: 20190515
  Receipt Date: 20190515
  Transmission Date: 20190711
  Serious: Yes (Other)
  Sender: FDA-Public Use
  Company Number: None

PATIENT
  Age: 63 Year
  Sex: Female
  Weight: 83.25 kg

DRUGS (3)
  1. EMGALITY [Suspect]
     Active Substance: GALCANEZUMAB-GNLM
     Indication: MIGRAINE
     Dosage: ?          QUANTITY:1 INJECTION(S);OTHER FREQUENCY:EVERY 30 DAYS;?
     Route: 058
  2. TORADOL [Concomitant]
     Active Substance: KETOROLAC TROMETHAMINE
  3. SYNTHROID PRN-SUMATRIPTAN [Concomitant]

REACTIONS (5)
  - Visual impairment [None]
  - Fatigue [None]
  - Weight increased [None]
  - Alopecia [None]
  - Dyspepsia [None]

NARRATIVE: CASE EVENT DATE: 20190421
